FAERS Safety Report 12082703 (Version 1)
Quarter: 2016Q1

REPORT INFORMATION
  Report Type: Report from Study
  Country: US (occurrence: US)
  Receive Date: 20160217
  Receipt Date: 20160217
  Transmission Date: 20160526
  Serious: Yes (Other)
  Sender: FDA-Public Use
  Company Number: US-ROCHE-1401134

PATIENT
  Sex: Female
  Weight: 60 kg

DRUGS (22)
  1. ALLEGRA [Concomitant]
     Active Substance: FEXOFENADINE HYDROCHLORIDE
     Route: 048
  2. EPIPEN [Concomitant]
     Active Substance: EPINEPHRINE
     Route: 030
  3. IMITREX [Concomitant]
     Active Substance: SUMATRIPTAN SUCCINATE
     Route: 048
  4. NASACORT AQ [Concomitant]
     Active Substance: TRIAMCINOLONE ACETONIDE
     Dosage: 55MCG, 2 SPRAYS
     Route: 065
  5. SINGULAIR [Concomitant]
     Active Substance: MONTELUKAST SODIUM
     Route: 048
  6. IBUPROFEN. [Concomitant]
     Active Substance: IBUPROFEN
  7. GASTROCROM [Concomitant]
     Active Substance: CROMOLYN SODIUM
     Route: 048
  8. LEVOXYL [Concomitant]
     Active Substance: LEVOTHYROXINE SODIUM
     Dosage: 50MCG
     Route: 048
  9. MIDODRINE [Concomitant]
     Active Substance: MIDODRINE
     Route: 048
  10. XOLAIR [Suspect]
     Active Substance: OMALIZUMAB
     Indication: ASTHMA
     Route: 058
  11. XOLAIR [Suspect]
     Active Substance: OMALIZUMAB
     Route: 058
  12. PREDNISONE. [Concomitant]
     Active Substance: PREDNISONE
     Route: 048
  13. NAPROXEN. [Suspect]
     Active Substance: NAPROXEN
     Indication: PRODUCT USED FOR UNKNOWN INDICATION
     Route: 065
  14. MAXAIR [Concomitant]
     Active Substance: PIRBUTEROL ACETATE
     Dosage: FREQUENCY:1 IN 6-8 HOURS?2 PUFFS AS NEEDED
     Route: 065
  15. XOPENEX [Concomitant]
     Active Substance: LEVALBUTEROL HYDROCHLORIDE
     Route: 065
  16. RABEPRAZOLE [Concomitant]
     Active Substance: RABEPRAZOLE
     Route: 048
  17. IVIG [Concomitant]
     Active Substance: HUMAN IMMUNOGLOBULIN G
  18. OPTIVAR [Concomitant]
     Active Substance: AZELASTINE HYDROCHLORIDE
     Route: 065
  19. SULFAMETHOXAZOLE/TRIMETHOPRIM [Suspect]
     Active Substance: SULFAMETHOXAZOLE\TRIMETHOPRIM
     Indication: PRODUCT USED FOR UNKNOWN INDICATION
     Route: 065
  20. PLAQUENIL [Concomitant]
     Active Substance: HYDROXYCHLOROQUINE SULFATE
     Route: 048
  21. PULMICORT TURBUHALER [Concomitant]
     Active Substance: BUDESONIDE
     Dosage: 180MCG,  2 PUFF
     Route: 065
  22. ALBUTEROL. [Concomitant]
     Active Substance: ALBUTEROL

REACTIONS (4)
  - Increased tendency to bruise [Unknown]
  - Leukopenia [Unknown]
  - Asthma [Unknown]
  - Haematochezia [Unknown]
